FAERS Safety Report 15556367 (Version 2)
Quarter: 2018Q4

REPORT INFORMATION
  Report Type: Spontaneous
  Country: FR (occurrence: FR)
  Receive Date: 20181026
  Receipt Date: 20181101
  Transmission Date: 20190205
  Serious: Yes (Other)
  Sender: FDA-Public Use
  Company Number: FR-CELGENEUS-FRA-20181007125

PATIENT
  Age: 72 Year
  Sex: Male

DRUGS (1)
  1. OTEZLA [Suspect]
     Active Substance: APREMILAST
     Indication: PSORIASIS
     Dosage: 30 MILLIGRAM
     Route: 048
     Dates: start: 201611

REACTIONS (4)
  - General physical health deterioration [Unknown]
  - Psoriasis [Unknown]
  - Renal impairment [Unknown]
  - Mental disorder [Unknown]

NARRATIVE: CASE EVENT DATE: 2018
